FAERS Safety Report 16544070 (Version 1)
Quarter: 2019Q3

REPORT INFORMATION
  Report Type: Spontaneous
  Country: NO (occurrence: NO)
  Receive Date: 20190709
  Receipt Date: 20190709
  Transmission Date: 20191004
  Serious: Yes (Disabling)
  Sender: FDA-Public Use
  Company Number: NO-PFIZER INC-2019290877

PATIENT
  Age: 67 Year
  Sex: Female

DRUGS (2)
  1. LYRICA [Suspect]
     Active Substance: PREGABALIN
     Indication: ANXIETY
     Dosage: 250 MG, DAILY (100+50+100, ONCE EVERY 8 HOURS)
  2. LYRICA [Suspect]
     Active Substance: PREGABALIN
     Indication: RESTLESSNESS

REACTIONS (5)
  - Hypokinesia [Recovered/Resolved]
  - Restlessness [Recovered/Resolved]
  - Mental impairment [Recovered/Resolved]
  - Dysarthria [Recovered/Resolved]
  - Agitation [Recovered/Resolved]

NARRATIVE: CASE EVENT DATE: 20080101
